FAERS Safety Report 4289120-2 (Version None)
Quarter: 2004Q1

REPORT INFORMATION
  Report Type: 
  Country: None (occurrence: None)
  Receive Date: 20040206
  Receipt Date: 20040129
  Transmission Date: 20041129
  Serious: Yes (Other)
  Sender: FDA-Public Use
  Company Number: TPA2004A00111

PATIENT
  Age: 75 Year
  Sex: Female
  Weight: 91.6266 kg

DRUGS (2)
  1. ACTOS [Suspect]
     Indication: DIABETES MELLITUS NON-INSULIN-DEPENDENT
     Dosage: 30 MG, 1 IN 1 D, PER ORAL
     Route: 048
     Dates: start: 20020129
  2. AMARYL (GLIMEPIRIDE)(4 MILLIGRAM) [Concomitant]

REACTIONS (5)
  - BLOOD GLUCOSE INCREASED [None]
  - BREAST CANCER [None]
  - ENDOMETRIAL CANCER [None]
  - OEDEMA PERIPHERAL [None]
  - WEIGHT INCREASED [None]
